FAERS Safety Report 7150207-8 (Version None)
Quarter: 2010Q4

REPORT INFORMATION
  Report Type: 
  Country: None (occurrence: None)
  Receive Date: 20101210
  Receipt Date: 20101202
  Transmission Date: 20110411
  Serious: Yes (Other)
  Sender: FDA-Public Use
  Company Number: IT-BRISTOL-MYERS SQUIBB COMPANY-15423346

PATIENT

DRUGS (2)
  1. ONGLYZA [Suspect]
  2. METFORMIN HCL [Suspect]

REACTIONS (1)
  - STOMATITIS [None]
